FAERS Safety Report 4359005-1 (Version None)
Quarter: 2004Q2

REPORT INFORMATION
  Report Type: 
  Country: None (occurrence: None)
  Receive Date: 20040512
  Receipt Date: 20030616
  Transmission Date: 20050107
  Serious: Yes (Other)
  Sender: FDA-Public Use
  Company Number: LU-JNJFOC-20030601870

PATIENT
  Sex: Female
  Weight: 4 kg

DRUGS (3)
  1. PROPULSID [Suspect]
     Indication: GASTROOESOPHAGEAL REFLUX DISEASE
     Dosage: 0.7 MG, 4 IN 1 DAY; 0.5 MG, 4 IN 1 DAY
     Dates: start: 20030601, end: 20030613
  2. PROPULSID [Suspect]
     Indication: GASTROOESOPHAGEAL REFLUX DISEASE
     Dosage: 0.7 MG, 4 IN 1 DAY; 0.5 MG, 4 IN 1 DAY
     Dates: start: 20030528
  3. GAVISCON [Concomitant]

REACTIONS (3)
  - ELECTROCARDIOGRAM QT CORRECTED INTERVAL PROLONGED [None]
  - ELECTROCARDIOGRAM QT PROLONGED [None]
  - HEART RATE INCREASED [None]
